FAERS Safety Report 4902534-X (Version None)
Quarter: 2006Q1

REPORT INFORMATION
  Report Type: 
  Country: None (occurrence: None)
  Receive Date: 20060202
  Receipt Date: 20060126
  Transmission Date: 20060701
  Serious: Yes (Other)
  Sender: FDA-Public Use
  Company Number: HQWYE538027JAN06

PATIENT
  Sex: Female

DRUGS (1)
  1. PREMARIN [Suspect]
     Route: 067

REACTIONS (3)
  - ANORECTAL DISORDER [None]
  - HYPERSENSITIVITY [None]
  - OEDEMA GENITAL [None]
